FAERS Safety Report 13968821 (Version 1)
Quarter: 2017Q3

REPORT INFORMATION
  Report Type: Spontaneous
  Country: US (occurrence: US)
  Receive Date: 20170914
  Receipt Date: 20170914
  Transmission Date: 20171128
  Serious: No
  Sender: FDA-Public Use
  Company Number: US-UPSHER-SMITH LABORATORIES, INC.-17000286

PATIENT
  Age: 62 Year
  Sex: Male

DRUGS (2)
  1. BACLOFEN. [Suspect]
     Active Substance: BACLOFEN
     Indication: BACK PAIN
     Dosage: 20 MG, QD
     Route: 048
     Dates: start: 201703, end: 201703
  2. BACLOFEN. [Suspect]
     Active Substance: BACLOFEN
     Dosage: 5 MG, QD
     Route: 048
     Dates: start: 201703, end: 201703

REACTIONS (6)
  - Feeling abnormal [None]
  - Drug ineffective for unapproved indication [None]
  - Pain in extremity [None]
  - Confusional state [None]
  - Headache [None]
  - Dizziness [None]

NARRATIVE: CASE EVENT DATE: 201703
